FAERS Safety Report 17364719 (Version 2)
Quarter: 2023Q4

REPORT INFORMATION
  Report Type: Spontaneous
  Country: ES (occurrence: ES)
  Receive Date: 20200204
  Receipt Date: 20231202
  Transmission Date: 20240110
  Serious: Yes (Hospitalization, Other)
  Sender: FDA-Public Use
  Company Number: ES-AEMPS-589715

PATIENT
  Age: 50 Year
  Sex: Male

DRUGS (6)
  1. AMLODIPINE [Interacting]
     Active Substance: AMLODIPINE BESYLATE
     Indication: Hypertension
     Dosage: 5 MILLIGRAM, ONCE A DAY
     Route: 048
     Dates: start: 20110114
  2. ENALAPRIL [Interacting]
     Active Substance: ENALAPRIL
     Indication: Hypertension
     Dosage: 20 MILLIGRAM, ONCE A DAY
     Route: 048
     Dates: start: 20110114, end: 20180128
  3. ATORVASTATIN [Concomitant]
     Active Substance: ATORVASTATIN
     Indication: Product used for unknown indication
     Dosage: 20 MILLIGRAM, ONCE A DAY
     Route: 048
     Dates: start: 20170111, end: 20180128
  4. ENVARSUS XR [Concomitant]
     Active Substance: TACROLIMUS
     Indication: Renal transplant
     Dosage: 3 MILLIGRAM, ONCE A DAY
     Route: 048
     Dates: start: 20170111
  5. MYCOPHENOLATE MOFETIL [Concomitant]
     Active Substance: MYCOPHENOLATE MOFETIL
     Indication: Renal transplant
     Dosage: 1 GRAM, ONCE A DAY
     Route: 048
     Dates: start: 20170111
  6. PREDNISONE [Concomitant]
     Active Substance: PREDNISONE
     Indication: Renal transplant
     Dosage: 5 MILLIGRAM, ONCE A DAY
     Route: 048
     Dates: start: 20170111

REACTIONS (2)
  - Acute kidney injury [Recovered/Resolved]
  - Drug interaction [Unknown]

NARRATIVE: CASE EVENT DATE: 20180101
